FAERS Safety Report 23473586 (Version 1)
Quarter: 2024Q1

REPORT INFORMATION
  Report Type: Spontaneous
  Country: US (occurrence: US)
  Receive Date: 20240203
  Receipt Date: 20240203
  Transmission Date: 20240410
  Serious: No
  Sender: FDA-Public Use
  Company Number: US-HORIZON THERAPEUTICS-HZN-2023-000889

PATIENT

DRUGS (1)
  1. TEPEZZA [Suspect]
     Active Substance: TEPROTUMUMAB-TRBW
     Indication: Product used for unknown indication
     Dosage: FIRST DOSE
     Route: 065

REACTIONS (8)
  - Dizziness [Unknown]
  - Vertigo [Recovered/Resolved]
  - Blood pressure increased [Unknown]
  - Skin burning sensation [Unknown]
  - Onychoclasis [Unknown]
  - Alopecia [Unknown]
  - Dry skin [Unknown]
  - Muscle spasms [Unknown]
